FAERS Safety Report 19833157 (Version 3)
Quarter: 2021Q4

REPORT INFORMATION
  Report Type: Report from Study
  Country: CR (occurrence: CR)
  Receive Date: 20210915
  Receipt Date: 20211005
  Transmission Date: 20220303
  Serious: Yes (Other)
  Sender: FDA-Public Use
  Company Number: CR-BRISTOL-MYERS SQUIBB COMPANY-BMS-2021-092114

PATIENT
  Age: 88 Year
  Sex: Male

DRUGS (1)
  1. APIXABAN [Suspect]
     Active Substance: APIXABAN
     Indication: Cerebrovascular accident prophylaxis
     Dosage: 1 DOSAGE FORM DAILY
     Route: 065

REACTIONS (4)
  - Syncope [Recovered/Resolved]
  - Colitis [Unknown]
  - Hypoxia [Unknown]
  - Treatment noncompliance [Unknown]
